FAERS Safety Report 9570970 (Version 1)
Quarter: 2013Q3

REPORT INFORMATION
  Report Type: Spontaneous
  Country: US (occurrence: None)
  Receive Date: 20130927
  Receipt Date: 20130927
  Transmission Date: 20140515
  Serious: No
  Sender: FDA-Public Use
  Company Number: None

PATIENT
  Age: 61 Year
  Sex: Female

DRUGS (5)
  1. INCIVEK [Suspect]
     Indication: CHRONIC HEPATITIS C
  2. RIBASPHERE [Concomitant]
  3. PEGASYS [Concomitant]
  4. PFS [Concomitant]
  5. KIT [Concomitant]

REACTIONS (2)
  - Neutrophil count decreased [None]
  - Blood urine present [None]
